FAERS Safety Report 4392955-9 (Version None)
Quarter: 2004Q3

REPORT INFORMATION
  Report Type: 
  Country: None (occurrence: None)
  Receive Date: 20040702
  Receipt Date: 20040621
  Transmission Date: 20050211
  Serious: Yes (Death, Other)
  Sender: FDA-Public Use
  Company Number: 2004042548

PATIENT
  Age: 53 Year
  Sex: Male

DRUGS (9)
  1. VORICONAZOLE (VORICONAZOLE) [Suspect]
     Indication: PROPHYLAXIS
  2. MYCOPHENOLATE MOFETIL [Concomitant]
  3. CYCLOSPORINE [Concomitant]
  4. MEPREDNISONE [Concomitant]
  5. PREDNISONE [Concomitant]
  6. CEFTAZIDIME [Concomitant]
  7. TOBRAMYCIN [Concomitant]
  8. FLUCLOXACILLIN [Concomitant]
  9. GANCICLOVIR [Concomitant]

REACTIONS (10)
  - DRUG INEFFECTIVE [None]
  - LUNG CONSOLIDATION [None]
  - LUNG INFILTRATION [None]
  - MUCORMYCOSIS [None]
  - PATHOGEN RESISTANCE [None]
  - POST PROCEDURAL COMPLICATION [None]
  - PULMONARY HAEMORRHAGE [None]
  - PULMONARY MYCOSIS [None]
  - RENAL FAILURE ACUTE [None]
  - SEPSIS [None]
